FAERS Safety Report 12988809 (Version 2)
Quarter: 2017Q1

REPORT INFORMATION
  Report Type: Report from Study
  Country: None (occurrence: US)
  Receive Date: 20161130
  Receipt Date: 20170113
  Transmission Date: 20170428
  Serious: Yes (Hospitalization)
  Sender: FDA-Public Use
  Company Number: US-ABBVIE-16K-163-1728884-00

PATIENT
  Sex: Male

DRUGS (2)
  1. HUMIRA [Suspect]
     Active Substance: ADALIMUMAB
     Route: 058
     Dates: start: 201609
  2. HUMIRA [Suspect]
     Active Substance: ADALIMUMAB
     Indication: RHEUMATOID ARTHRITIS
     Route: 058

REACTIONS (6)
  - Gait disturbance [Unknown]
  - Gait disturbance [Unknown]
  - Angina unstable [Unknown]
  - Arthritis [Recovering/Resolving]
  - Headache [Unknown]
  - Joint stiffness [Unknown]

NARRATIVE: CASE EVENT DATE: 2013
